FAERS Safety Report 6828645-X (Version None)
Quarter: 2010Q3

REPORT INFORMATION
  Report Type: 
  Country: None (occurrence: None)
  Receive Date: 20100709
  Receipt Date: 20070215
  Transmission Date: 20110219
  Serious: No
  Sender: FDA-Public Use
  Company Number: US-PFIZER INC-2007013658

PATIENT
  Sex: Female
  Weight: 64.86 kg

DRUGS (2)
  1. CHANTIX [Suspect]
     Indication: SMOKING CESSATION THERAPY
     Dates: start: 20070101
  2. ADVIL LIQUI-GELS [Concomitant]
     Indication: ARTHRALGIA

REACTIONS (5)
  - ABNORMAL DREAMS [None]
  - AGGRESSION [None]
  - EMOTIONAL DISORDER [None]
  - SOMNOLENCE [None]
  - THINKING ABNORMAL [None]
